FAERS Safety Report 8495967-9 (Version None)
Quarter: 2012Q3

REPORT INFORMATION
  Report Type: 
  Country: None (occurrence: None)
  Receive Date: 20120709
  Receipt Date: 20120611
  Transmission Date: 20120928
  Serious: Yes (Disabling)
  Sender: FDA-Public Use
  Company Number: BE-GLAXOSMITHKLINE-B0808282A

PATIENT
  Sex: Male

DRUGS (2)
  1. KEPPRA [Concomitant]
     Indication: EPILEPSY
     Route: 048
     Dates: start: 20080714
  2. LAMICTAL [Suspect]
     Indication: EPILEPSY
     Route: 048
     Dates: start: 20071207, end: 20120312

REACTIONS (9)
  - MALAISE [None]
  - FATIGUE [None]
  - POISONING [None]
  - DISSOCIATION [None]
  - EPILEPSY [None]
  - NIGHTMARE [None]
  - MORBID THOUGHTS [None]
  - SUICIDAL IDEATION [None]
  - APHASIA [None]
